FAERS Safety Report 9792049 (Version 1)
Quarter: 2013Q4

REPORT INFORMATION
  Report Type: Spontaneous
  Country: US (occurrence: None)
  Receive Date: 20131230
  Receipt Date: 20131230
  Transmission Date: 20140711
  Serious: Yes (Hospitalization, Other)
  Sender: FDA-Public Use
  Company Number: FK201305559

PATIENT
  Age: 62 Year
  Sex: Female

DRUGS (3)
  1. PACLITAXEL (MANUFACTURER UNKNOWN) (PACLITAXEL) (PACLITAXEL) [Suspect]
     Indication: INVASIVE DUCTAL BREAST CARCINOMA
  2. DOCETAXEL (MANUFACTURER UNKNOWN) (DOCETAXEL) (DOCETAXEL) [Suspect]
     Indication: INVASIVE DUCTAL BREAST CARCINOMA
  3. PEGFILGRASTIM (PEGFILGRASTIM) [Concomitant]

REACTIONS (6)
  - Palmar-plantar erythrodysaesthesia syndrome [None]
  - Mucosal inflammation [None]
  - Nausea [None]
  - Vomiting [None]
  - Neuropathy peripheral [None]
  - Rash pruritic [None]
